FAERS Safety Report 18021820 (Version 2)
Quarter: 2020Q4

REPORT INFORMATION
  Report Type: Spontaneous
  Country: AU (occurrence: AU)
  Receive Date: 20200714
  Receipt Date: 20201006
  Transmission Date: 20210113
  Serious: Yes (Hospitalization)
  Sender: FDA-Public Use
  Company Number: AU-MYLANLABS-2020M1064490

PATIENT
  Sex: Male

DRUGS (4)
  1. DOXINATE                           /00055703/ [Concomitant]
     Indication: CONSTIPATION
     Dosage: 50 MILLIGRAM, BID
  2. CLOZARIL [Suspect]
     Active Substance: CLOZAPINE
     Indication: SCHIZOPHRENIA
     Dosage: 450 MILLIGRAM
     Route: 048
     Dates: start: 20200520
  3. VENLAFAXINE [Concomitant]
     Active Substance: VENLAFAXINE HYDROCHLORIDE
     Indication: DEPRESSION
     Dosage: 150 MILLIGRAM, QD
  4. LACTULOSE. [Concomitant]
     Active Substance: LACTULOSE
     Indication: CONSTIPATION
     Dosage: 140 MILLIGRAM (70 MG MANE + 70 MG BD PM)

REACTIONS (3)
  - Weight increased [Unknown]
  - Schizophrenia [Unknown]
  - Tachycardia [Unknown]
